FAERS Safety Report 4919144-0 (Version None)
Quarter: 2006Q1

REPORT INFORMATION
  Report Type: 
  Country: None (occurrence: None)
  Receive Date: 20060216
  Receipt Date: 20060207
  Transmission Date: 20060701
  Serious: Yes (Disabling, Other)
  Sender: FDA-Public Use
  Company Number: 2005155574

PATIENT
  Age: 61 Year
  Sex: Female

DRUGS (6)
  1. AROMASIN [Suspect]
     Indication: BREAST CANCER
  2. LIBRAX [Concomitant]
  3. LOPRESSOR [Concomitant]
  4. LOPID [Concomitant]
  5. LODINE [Concomitant]
  6. SINGULAIR [Concomitant]

REACTIONS (1)
  - PULMONARY HYPERTENSION [None]
